FAERS Safety Report 11052813 (Version 1)
Quarter: 2015Q2

REPORT INFORMATION
  Report Type: Spontaneous
  Country: US (occurrence: None)
  Receive Date: 20150420
  Receipt Date: 20150420
  Transmission Date: 20150821
  Serious: Yes (Hospitalization)
  Sender: FDA-Public Use
  Company Number: None

PATIENT
  Age: 89 Year
  Sex: Male

DRUGS (4)
  1. VISMODEGIB [Suspect]
     Active Substance: VISMODEGIB
     Indication: BASAL CELL CARCINOMA
     Dosage: 1 PILL, QD, ORAL
     Route: 048
     Dates: start: 20150403, end: 20150418
  2. METOPROLOL [Concomitant]
     Active Substance: METOPROLOL
  3. APIXABAN [Concomitant]
     Active Substance: APIXABAN
  4. LOSARTAN [Concomitant]
     Active Substance: LOSARTAN

REACTIONS (1)
  - Febrile neutropenia [None]

NARRATIVE: CASE EVENT DATE: 20150418
